FAERS Safety Report 16046924 (Version 4)
Quarter: 2020Q1

REPORT INFORMATION
  Report Type: Spontaneous
  Country: US (occurrence: US)
  Receive Date: 20190307
  Receipt Date: 20200306
  Transmission Date: 20200409
  Serious: Yes (Hospitalization, Other)
  Sender: FDA-Public Use
  Company Number: US-PFIZER INC-2019096350

PATIENT
  Age: 66 Year
  Sex: Female
  Weight: 75 kg

DRUGS (3)
  1. XELJANZ [Suspect]
     Active Substance: TOFACITINIB CITRATE
     Indication: RHEUMATOID ARTHRITIS
     Dosage: 5 MG, 2X/DAY
  2. TRULICITY [Concomitant]
     Active Substance: DULAGLUTIDE
     Indication: DIABETES MELLITUS
     Dosage: UNK, WEEKLY
  3. METFORMIN [Concomitant]
     Active Substance: METFORMIN HYDROCHLORIDE
     Indication: DIABETES MELLITUS
     Dosage: UNK, 1X/DAY

REACTIONS (9)
  - Spinal cord compression [Recovered/Resolved]
  - Blood test abnormal [Unknown]
  - Productive cough [Unknown]
  - Dyspnoea [Unknown]
  - Respiratory tract infection [Unknown]
  - Lung disorder [Not Recovered/Not Resolved]
  - Mycobacterium test positive [Unknown]
  - Dysphonia [Unknown]
  - Liver function test abnormal [Unknown]

NARRATIVE: CASE EVENT DATE: 2018
